FAERS Safety Report 9090030 (Version 1)
Quarter: 2013Q1

REPORT INFORMATION
  Report Type: Spontaneous
  Country: US (occurrence: US)
  Receive Date: 20130131
  Receipt Date: 20130131
  Transmission Date: 20140127
  Serious: No
  Sender: FDA-Public Use
  Company Number: US-ABBOTT-12P-163-1015162-00

PATIENT
  Age: 39 Year
  Sex: Female

DRUGS (4)
  1. HUMIRA [Suspect]
     Indication: CROHN^S DISEASE
     Dates: start: 20121016
  2. 6-MP [Concomitant]
     Indication: PRODUCT USED FOR UNKNOWN INDICATION
     Dosage: 1.5 TABS DAILY
  3. LIALDA [Concomitant]
     Indication: CROHN^S DISEASE
     Dosage: 2 TABS DAILY
  4. SYNTHROID [Concomitant]
     Indication: HORMONE REPLACEMENT THERAPY

REACTIONS (2)
  - Injection site reaction [Recovered/Resolved]
  - Injection site swelling [Not Recovered/Not Resolved]
